FAERS Safety Report 10464713 (Version 2)
Quarter: 2014Q3

REPORT INFORMATION
  Report Type: Report from Study
  Country: US (occurrence: US)
  Receive Date: 20140919
  Receipt Date: 20140919
  Transmission Date: 20150326
  Serious: Yes (Hospitalization, Other)
  Sender: FDA-Public Use
  Company Number: US-ASTELLAS-2014US012375

PATIENT
  Sex: Male

DRUGS (3)
  1. ERLOTINIB [Suspect]
     Active Substance: ERLOTINIB
     Indication: MALIGNANT RESPIRATORY TRACT NEOPLASM
     Route: 065
     Dates: start: 20051021, end: 20060302
  2. ERLOTINIB [Suspect]
     Active Substance: ERLOTINIB
     Indication: NON-SMALL CELL LUNG CANCER
  3. MEGACE [Concomitant]
     Active Substance: MEGESTROL ACETATE
     Indication: PRODUCT USED FOR UNKNOWN INDICATION
     Dosage: UNK UNK, ONCE DAILY
     Route: 065

REACTIONS (13)
  - Constipation [Unknown]
  - Chest pain [Unknown]
  - Thrombophlebitis [Unknown]
  - Chromaturia [Unknown]
  - Cough [Unknown]
  - Decreased appetite [Unknown]
  - Haemoptysis [Unknown]
  - Malaise [Unknown]
  - Clubbing [Unknown]
  - Malignant pleural effusion [Unknown]
  - Asthenia [Unknown]
  - Pain [Unknown]
  - Weight decreased [Unknown]
